FAERS Safety Report 17537516 (Version 1)
Quarter: 2020Q1

REPORT INFORMATION
  Report Type: Spontaneous
  Country: US (occurrence: US)
  Receive Date: 20200313
  Receipt Date: 20200313
  Transmission Date: 20200409
  Serious: No
  Sender: FDA-Public Use
  Company Number: US-LUPIN PHARMACEUTICALS INC.-2020-01117

PATIENT
  Age: 53 Year
  Sex: Female
  Weight: 58.05 kg

DRUGS (1)
  1. LOSARTAN POTASSIUM TABLETS, 25 MG [Suspect]
     Active Substance: LOSARTAN POTASSIUM
     Indication: HYPERTENSION
     Dosage: UNK UNK, BID (25MG EVERY AM, (1/2) TABLET EVERY PM)
     Route: 048
     Dates: start: 201802

REACTIONS (5)
  - Product quality issue [Unknown]
  - Anxiety [Not Recovered/Not Resolved]
  - Feeling abnormal [Not Recovered/Not Resolved]
  - Wrong technique in product usage process [Unknown]
  - Product dose omission [Unknown]

NARRATIVE: CASE EVENT DATE: 201802
